FAERS Safety Report 8998955 (Version 1)
Quarter: 2013Q1

REPORT INFORMATION
  Report Type: Spontaneous
  Country: US (occurrence: US)
  Receive Date: 20130103
  Receipt Date: 20130103
  Transmission Date: 20140127
  Serious: No
  Sender: FDA-Public Use
  Company Number: US-PFIZER INC-2012330181

PATIENT
  Age: 60 Year
  Sex: Female

DRUGS (10)
  1. ERYTHROMYCIN [Suspect]
     Dosage: UNK
  2. MORPHINE [Suspect]
     Dosage: UNK
  3. TROVAN [Suspect]
     Dosage: UNK
  4. METFORMIN HYDROCHLORIDE [Suspect]
     Dosage: UNK
  5. VITAMIN E [Suspect]
     Dosage: UNK
  6. PAROXETINE [Suspect]
     Dosage: UNK
  7. TYLENOL [Suspect]
     Dosage: UNK
  8. ADVAIR [Suspect]
     Dosage: UNK
  9. CLARITIN [Suspect]
     Dosage: UNK
  10. DEMEROL [Suspect]
     Dosage: UNK

REACTIONS (1)
  - Drug hypersensitivity [Unknown]
